FAERS Safety Report 6805860-2 (Version None)
Quarter: 2010Q2

REPORT INFORMATION
  Report Type: 
  Country: None (occurrence: None)
  Receive Date: 20100629
  Receipt Date: 20071018
  Transmission Date: 20101027
  Serious: No
  Sender: FDA-Public Use
  Company Number: US-PFIZER INC-2007076815

PATIENT
  Age: 45 Year
  Sex: Male
  Weight: 99.8 kg

DRUGS (7)
  1. VIAGRA [Suspect]
     Indication: ERECTILE DYSFUNCTION
     Dates: start: 20070201, end: 20070301
  2. VIAGRA [Suspect]
     Indication: COMPLEX REGIONAL PAIN SYNDROME
  3. OPIOIDS [Concomitant]
  4. ANTIDEPRESSANTS [Concomitant]
  5. EFFEXOR [Concomitant]
     Indication: DEPRESSION
  6. MORPHINE [Concomitant]
  7. VICODIN [Concomitant]

REACTIONS (2)
  - ANALGESIC THERAPY [None]
  - DRUG INEFFECTIVE [None]
